FAERS Safety Report 25171053 (Version 2)
Quarter: 2025Q2

REPORT INFORMATION
  Report Type: Spontaneous
  Country: JP (occurrence: JP)
  Receive Date: 20250408
  Receipt Date: 20250422
  Transmission Date: 20250717
  Serious: Yes (Life-Threatening, Hospitalization)
  Sender: CELLTRION
  Company Number: JP-JPNKAYAKU-2025JPNK048248

PATIENT

DRUGS (4)
  1. BEVACIZUMAB [Suspect]
     Active Substance: BEVACIZUMAB
     Indication: Hepatic cancer
     Route: 042
  2. BEVACIZUMAB [Suspect]
     Active Substance: BEVACIZUMAB
     Indication: Metastases to liver
  3. ATEZOLIZUMAB [Suspect]
     Active Substance: ATEZOLIZUMAB
     Indication: Hepatic cancer
     Route: 042
  4. ATEZOLIZUMAB [Suspect]
     Active Substance: ATEZOLIZUMAB
     Indication: Metastases to liver

REACTIONS (6)
  - Shock haemorrhagic [Unknown]
  - Tumour rupture [Unknown]
  - Tumour rupture [Recovering/Resolving]
  - Tumour rupture [Recovered/Resolved]
  - Intra-abdominal haemorrhage [Recovering/Resolving]
  - Intentional product use issue [Unknown]
